FAERS Safety Report 10146268 (Version 1)
Quarter: 2014Q2

REPORT INFORMATION
  Report Type: Spontaneous
  Country: US (occurrence: None)
  Receive Date: 20140430
  Receipt Date: 20140430
  Transmission Date: 20141212
  Serious: No
  Sender: FDA-Public Use
  Company Number: None

PATIENT
  Age: 36 Year
  Sex: Female
  Weight: 58.06 kg

DRUGS (1)
  1. ABLAVAR [Suspect]
     Dosage: ADMINISTERED VIA I.V.DURING AN MRA EXAM.

REACTIONS (3)
  - Drug hypersensitivity [None]
  - Dizziness [None]
  - Dysgeusia [None]
